FAERS Safety Report 20561954 (Version 1)
Quarter: 2022Q1

REPORT INFORMATION
  Report Type: Spontaneous
  Country: US (occurrence: US)
  Receive Date: 20220307
  Receipt Date: 20220307
  Transmission Date: 20220423
  Serious: Yes (Life-Threatening, Hospitalization)
  Sender: FDA-Public Use
  Company Number: US-AVEO ONCOLOGY-2021-AVEO-US003534

PATIENT

DRUGS (16)
  1. FOTIVDA [Suspect]
     Active Substance: TIVOZANIB HYDROCHLORIDE
     Indication: Renal cell carcinoma
     Dosage: 1.34 MG, DAILY FOR 21 DAYS THEN 7 DAYS OFF
     Route: 048
     Dates: start: 20210610
  2. CYCLOBENZAPRINE [Concomitant]
     Active Substance: CYCLOBENZAPRINE
  3. OXYCODONE [Concomitant]
     Active Substance: OXYCODONE
  4. VITAMIN D3 [Concomitant]
     Active Substance: CHOLECALCIFEROL
  5. Noxylane 4 [Concomitant]
  6. IODINE [Concomitant]
     Active Substance: IODINE
  7. Melatonin ER [Concomitant]
  8. Max3 IP6 [Concomitant]
  9. LEUKINE [Concomitant]
     Active Substance: SARGRAMOSTIM
  10. FERROUS SULFATE [Concomitant]
     Active Substance: FERROUS SULFATE
  11. FIRMAGON [Concomitant]
     Active Substance: DEGARELIX ACETATE
  12. DEXAMETHASONE [Concomitant]
     Active Substance: DEXAMETHASONE
  13. CIALIS [Concomitant]
     Active Substance: TADALAFIL
  14. ASPIRIN [Concomitant]
     Active Substance: ASPIRIN
  15. ADVIL DUAL ACTION WITH ACETAMINOPHEN [Concomitant]
     Active Substance: ACETAMINOPHEN\IBUPROFEN
  16. ABIRATERONE ACETATE [Concomitant]
     Active Substance: ABIRATERONE ACETATE

REACTIONS (3)
  - Acute respiratory distress syndrome [Unknown]
  - Pneumonia [Unknown]
  - Off label use [Unknown]
